FAERS Safety Report 15949986 (Version 1)
Quarter: 2019Q1

REPORT INFORMATION
  Report Type: Spontaneous
  Country: IN (occurrence: IN)
  Receive Date: 20190211
  Receipt Date: 20190211
  Transmission Date: 20190417
  Serious: Yes (Other)
  Sender: FDA-Public Use
  Company Number: IN-PFIZER INC-2019056362

PATIENT
  Age: 19 Year
  Sex: Female

DRUGS (3)
  1. DAUNORUBICIN HCL [Suspect]
     Active Substance: DAUNORUBICIN HYDROCHLORIDE
     Indication: ACUTE MYELOMONOCYTIC LEUKAEMIA
     Dosage: 60 MG/M2, CYCLIC (3+7 PROTOCOL, INDUCTION)
  2. CYTARABINE. [Suspect]
     Active Substance: CYTARABINE
     Dosage: UNK, CYCLIC (CONSOLIDATION THERAPY WITH 2 CYCLES OF HIGH DOSE CYTARABINE,18 GM/M2, DAY 1, 3 AND 5,)
  3. CYTARABINE. [Suspect]
     Active Substance: CYTARABINE
     Indication: ACUTE MYELOMONOCYTIC LEUKAEMIA
     Dosage: 100 MG/M2, CYCLIC (3+7 PROTOCOL,INDUCTION)

REACTIONS (2)
  - Febrile neutropenia [Unknown]
  - Pneumonia fungal [Unknown]
